FAERS Safety Report 8928693 (Version 1)
Quarter: 2012Q4

REPORT INFORMATION
  Report Type: Spontaneous
  Country: US (occurrence: None)
  Receive Date: 20121121
  Receipt Date: 20121121
  Transmission Date: 20130627
  Serious: Yes (Hospitalization)
  Sender: FDA-Public Use
  Company Number: DKLU1086336

PATIENT
  Age: 8 Year
  Sex: Female

DRUGS (4)
  1. SABRIL (TABLET) (SABRIL) (VIGABATRIN) (500 MG, TABLET) [Suspect]
     Indication: EPILEPSY
     Route: 048
     Dates: start: 20121016
  2. ONFI (CLOBAZAM) (CLOBAZAM) [Concomitant]
  3. DEPAKOTE (VALPROATE SEMISODIUM) [Concomitant]
  4. KETOGENIC DIET (ANTIEPILEPTICS) [Concomitant]

REACTIONS (4)
  - Screaming [None]
  - Agitation [None]
  - Vomiting [None]
  - Insomnia [None]
